FAERS Safety Report 14269343 (Version 2)
Quarter: 2018Q1

REPORT INFORMATION
  Report Type: Spontaneous
  Country: FR (occurrence: FR)
  Receive Date: 20171211
  Receipt Date: 20180111
  Transmission Date: 20180508
  Serious: Yes (Life-Threatening, Hospitalization, Other)
  Sender: FDA-Public Use
  Company Number: FR-OTSUKA-2016_011095

PATIENT
  Age: 53 Year
  Sex: Male

DRUGS (6)
  1. ABILIFY [Interacting]
     Active Substance: ARIPIPRAZOLE
     Dosage: 10 MG, BID
     Route: 048
     Dates: start: 20160331, end: 20160424
  2. XEROQUEL [Suspect]
     Active Substance: QUETIAPINE FUMARATE
     Indication: DELUSION
     Dosage: 2 DF, QD
     Route: 048
     Dates: start: 20151230
  3. ABILIFY [Suspect]
     Active Substance: ARIPIPRAZOLE
     Indication: DELUSION
     Dosage: 10 MG, QD
     Route: 048
     Dates: start: 20160211
  4. CLOZAPINE. [Interacting]
     Active Substance: CLOZAPINE
     Indication: DELUSION
     Dosage: 200 MG, QD
     Route: 048
     Dates: start: 20151230, end: 20160424
  5. ABILIFY [Interacting]
     Active Substance: ARIPIPRAZOLE
     Dosage: 15 MG, QD
     Route: 048
  6. XEROQUEL [Suspect]
     Active Substance: QUETIAPINE FUMARATE
     Dosage: UNK
     Route: 048
     Dates: end: 20160211

REACTIONS (17)
  - Condition aggravated [Recovered/Resolved]
  - Catatonia [Recovered/Resolved]
  - Off label use [Unknown]
  - Salivary hypersecretion [Recovered/Resolved]
  - Acute kidney injury [Unknown]
  - Delirium [Recovered/Resolved]
  - Extrapyramidal disorder [Recovered/Resolved]
  - Neuroleptic malignant syndrome [Recovered/Resolved]
  - Drug interaction [Unknown]
  - Psychomotor retardation [Recovered/Resolved]
  - Pneumonia aspiration [Not Recovered/Not Resolved]
  - Overdose [Unknown]
  - Respiratory failure [Unknown]
  - Blood creatine phosphokinase increased [Recovered/Resolved]
  - Septic shock [Unknown]
  - Psychiatric decompensation [Recovered/Resolved]
  - Hyperthermia [Recovered/Resolved]

NARRATIVE: CASE EVENT DATE: 20160423
